APPROVED DRUG PRODUCT: PEDIATRIC LTA KIT
Active Ingredient: LIDOCAINE HYDROCHLORIDE
Strength: 2%
Dosage Form/Route: SOLUTION;TOPICAL
Application: A085995 | Product #001
Applicant: HOSPIRA WORLDWIDE, INC
Approved: Approved Prior to Jan 1, 1982 | RLD: No | RS: No | Type: DISCN